FAERS Safety Report 15489585 (Version 1)
Quarter: 2018Q4

REPORT INFORMATION
  Report Type: Spontaneous
  Country: US (occurrence: US)
  Receive Date: 20181011
  Receipt Date: 20181011
  Transmission Date: 20190205
  Serious: No
  Sender: FDA-Public Use
  Company Number: US-ALLERGAN-1820713US

PATIENT
  Sex: Female
  Weight: 54.42 kg

DRUGS (5)
  1. COMBIGAN [Suspect]
     Active Substance: BRIMONIDINE TARTRATE\TIMOLOL MALEATE
     Indication: TORTICOLLIS
  2. COMBIGAN [Suspect]
     Active Substance: BRIMONIDINE TARTRATE\TIMOLOL MALEATE
     Indication: BLEPHAROSPASM
     Dosage: 2 GTT, BID
     Route: 047
  3. KLONOPIN [Concomitant]
     Active Substance: CLONAZEPAM
     Indication: MEIGE^S SYNDROME
     Dosage: UNK
     Route: 048
  4. KLONOPIN [Concomitant]
     Active Substance: CLONAZEPAM
     Indication: TORTICOLLIS
  5. COMBIGAN [Suspect]
     Active Substance: BRIMONIDINE TARTRATE\TIMOLOL MALEATE
     Indication: MEIGE^S SYNDROME

REACTIONS (1)
  - Off label use [Unknown]
